FAERS Safety Report 23699110 (Version 2)
Quarter: 2024Q2

REPORT INFORMATION
  Report Type: Report from Study
  Country: FR (occurrence: FR)
  Receive Date: 20240402
  Receipt Date: 20240419
  Transmission Date: 20240716
  Serious: Yes (Disabling, Other)
  Sender: FDA-Public Use
  Company Number: FR-MIRATI-MT2024PM06338

PATIENT
  Sex: Female
  Weight: 45 kg

DRUGS (5)
  1. KRAZATI [Suspect]
     Active Substance: ADAGRASIB
     Indication: Non-small cell lung cancer
     Dosage: 600 MG, BID
     Route: 048
     Dates: start: 20230913, end: 20231019
  2. KRAZATI [Suspect]
     Active Substance: ADAGRASIB
     Dosage: UNK
     Dates: end: 20240111
  3. LEVOTHYROXINE SODIUM [Concomitant]
     Active Substance: LEVOTHYROXINE SODIUM
     Indication: Hypothyroidism
     Dosage: DOSE NOT REPORTED AND STARTED BEFORE 2021
  4. PANTOPRAZOLE [Concomitant]
     Active Substance: PANTOPRAZOLE
     Dosage: DOSE NOT REPORTED AND STARTED BEFORE 2021
  5. PREGABALIN [Concomitant]
     Active Substance: PREGABALIN
     Dosage: DOSE NOT REPORTED AND STARTED BEFORE 2021

REACTIONS (2)
  - Nephropathy toxic [Unknown]
  - Chronic kidney disease [Recovering/Resolving]

NARRATIVE: CASE EVENT DATE: 20231019
